FAERS Safety Report 20928797 (Version 1)
Quarter: 2022Q2

REPORT INFORMATION
  Report Type: Spontaneous
  Country: US (occurrence: US)
  Receive Date: 20220607
  Receipt Date: 20220607
  Transmission Date: 20220721
  Serious: Yes (Disabling)
  Sender: FDA-Public Use
  Company Number: US-SA-SAC20220606000948

PATIENT
  Age: 66 Year
  Sex: Male

DRUGS (1)
  1. DUPIXENT [Suspect]
     Active Substance: DUPILUMAB
     Indication: Dermatitis atopic
     Dosage: 300 MG, QOW
     Route: 058
     Dates: start: 20200601

REACTIONS (6)
  - Walking aid user [Unknown]
  - Peripheral swelling [Unknown]
  - Pain [Unknown]
  - Limb injury [Unknown]
  - Suture removal [Unknown]
  - Surgery [Unknown]

NARRATIVE: CASE EVENT DATE: 20220527
